FAERS Safety Report 22071340 (Version 1)
Quarter: 2023Q1

REPORT INFORMATION
  Report Type: Spontaneous
  Country: US (occurrence: None)
  Receive Date: 20230307
  Receipt Date: 20230307
  Transmission Date: 20230417
  Serious: Yes (Hospitalization)
  Sender: FDA-Public Use
  Company Number: None

PATIENT
  Sex: Female

DRUGS (1)
  1. VERZENIO [Suspect]
     Active Substance: ABEMACICLIB
     Indication: Breast cancer female
     Dosage: FREQUENCY : TWICE A DAY;?
     Route: 048
     Dates: start: 20230215

REACTIONS (6)
  - Cerebrovascular accident [None]
  - Transient ischaemic attack [None]
  - Pain in extremity [None]
  - Abdominal pain upper [None]
  - Pain in extremity [None]
  - Chest discomfort [None]
